FAERS Safety Report 8848077 (Version 1)
Quarter: 2012Q4

REPORT INFORMATION
  Report Type: 
  Country: JP (occurrence: JP)
  Receive Date: 20121018
  Receipt Date: 20121018
  Transmission Date: 20130627
  Serious: Yes (Hospitalization)
  Sender: FDA-Public Use
  Company Number: JP-BAYER-2012-107529

PATIENT
  Age: 83 Year
  Sex: Female

DRUGS (3)
  1. NEXAVAR [Suspect]
     Indication: HEPATIC NEOPLASM MALIGNANT
     Dosage: 200 mg, BID
     Route: 048
     Dates: start: 20120829, end: 20121010
  2. OPIUM ALKALOIDS, HYDROCHLORIDES [Suspect]
     Indication: METASTASES TO BONE
  3. OPIUM ALKALOIDS, HYDROCHLORIDES [Suspect]
     Indication: PAIN MANAGEMENT

REACTIONS (1)
  - Rectal ulcer [Recovering/Resolving]
